FAERS Safety Report 11778973 (Version 1)
Quarter: 2015Q4

REPORT INFORMATION
  Report Type: Spontaneous
  Country: AR (occurrence: AR)
  Receive Date: 20151125
  Receipt Date: 20151125
  Transmission Date: 20160304
  Serious: Yes (Hospitalization, Other)
  Sender: FDA-Public Use
  Company Number: AR-PFIZER INC-2015397792

PATIENT
  Age: 64 Year
  Sex: Male

DRUGS (2)
  1. MORPHINE [Concomitant]
     Active Substance: MORPHINE
     Indication: PAIN IN EXTREMITY
  2. INLYTA [Suspect]
     Active Substance: AXITINIB
     Indication: RENAL CELL CARCINOMA
     Dosage: 2 MG, DAILY
     Dates: start: 20150801

REACTIONS (7)
  - Dehydration [Unknown]
  - Seizure [Recovering/Resolving]
  - Disease progression [Recovering/Resolving]
  - Gait disturbance [Not Recovered/Not Resolved]
  - Renal cell carcinoma [Recovering/Resolving]
  - Memory impairment [Unknown]
  - Wound infection [Unknown]

NARRATIVE: CASE EVENT DATE: 20150910
